FAERS Safety Report 8001378-2 (Version None)
Quarter: 2011Q4

REPORT INFORMATION
  Report Type: 
  Country: None (occurrence: None)
  Receive Date: 20111222
  Receipt Date: 20111128
  Transmission Date: 20120403
  Serious: Yes (Other)
  Sender: FDA-Public Use
  Company Number: BR-SANOFI-AVENTIS-2011SA079097

PATIENT
  Age: 84 Year
  Sex: Female
  Weight: 80 kg

DRUGS (10)
  1. ALENDRONATE SODIUM [Concomitant]
     Indication: OSTEOPOROSIS
     Dosage: STARTED ^YEARS AGO^.
     Route: 048
  2. ZOLPIDEM [Suspect]
     Indication: INSOMNIA
     Route: 048
     Dates: start: 20110101
  3. CHONDROITIN SULFATE/GLUCOSAMINE [Concomitant]
     Dosage: STARTED ^YEARS AGO^.
     Route: 048
  4. FLUNARIZINE DIHYDROCHLORIDE [Concomitant]
     Indication: DIZZINESS
     Dosage: STARTED ^YEARS AGO^.
     Route: 048
  5. TRAZODONE HCL [Suspect]
     Indication: INSOMNIA
     Dosage: STARTED ^4 MONTHS AGO^.
     Route: 048
     Dates: start: 20110101
  6. ENALAPRIL MALEATE [Concomitant]
     Indication: HYPERTENSION
     Dosage: STARTED ^YEARS AGO^. 2 TABLETS (NOS) BID.
     Route: 048
  7. CALCIUM [Concomitant]
     Indication: OSTEOPOROSIS
     Dosage: STARTED ^YEARS AGO^.
     Route: 048
  8. ARELIX [Concomitant]
     Indication: DIURETIC THERAPY
     Dosage: STARTED ^YEARS AGO^. 2 TABLETS OF 6 MG /DAY.
     Route: 048
  9. VITAMINS NOS [Concomitant]
     Dosage: STARTED ^6 MONTHS AGO^. 2 TABLETS (NOS) / DAY.
     Route: 048
     Dates: start: 20110101
  10. LACTULOSE [Concomitant]
     Indication: CONSTIPATION
     Dosage: STARTED ^6 MONTHS AGO^.
     Route: 048
     Dates: start: 20110101

REACTIONS (10)
  - DRY MOUTH [None]
  - BLOOD PRESSURE ABNORMAL [None]
  - MUSCULAR WEAKNESS [None]
  - CATARACT [None]
  - HEADACHE [None]
  - DRUG TOLERANCE [None]
  - DEPRESSION [None]
  - FALL [None]
  - VISION BLURRED [None]
  - DYSGEUSIA [None]
